FAERS Safety Report 26103179 (Version 1)
Quarter: 2025Q4

REPORT INFORMATION
  Report Type: Report from Study
  Country: US (occurrence: US)
  Receive Date: 20251129
  Receipt Date: 20251129
  Transmission Date: 20260117
  Serious: Yes (Other)
  Sender: ALEXION PHARMACEUTICALS
  Company Number: US-AstraZeneca-CH-01002473A

PATIENT
  Sex: Male

DRUGS (1)
  1. ULTOMIRIS [Suspect]
     Active Substance: RAVULIZUMAB-CWVZ
     Indication: Myasthenia gravis
     Dosage: UNK
     Route: 065

REACTIONS (8)
  - Choking [Unknown]
  - Pruritus [Unknown]
  - Pain [Unknown]
  - Burning sensation [Unknown]
  - Herpes zoster [Unknown]
  - Facial paresis [Unknown]
  - Dysphagia [Unknown]
  - Rash [Unknown]
